FAERS Safety Report 8613198-6 (Version None)
Quarter: 2012Q3

REPORT INFORMATION
  Report Type: 
  Country: None (occurrence: None)
  Receive Date: 20120822
  Receipt Date: 20120815
  Transmission Date: 20120928
  Serious: Yes (Death)
  Sender: FDA-Public Use
  Company Number: VN-BAXTER-2012BAX014817

PATIENT
  Age: 59 Year
  Sex: Female

DRUGS (2)
  1. DIANEAL [Suspect]
     Dosage: 1 BAG/DAY
     Route: 033
  2. DIANEAL [Suspect]
     Dosage: 3 BAG/ DAY
     Route: 033
     Dates: start: 20091202

REACTIONS (1)
  - GASTROINTESTINAL HAEMORRHAGE [None]
